FAERS Safety Report 23129736 (Version 3)
Quarter: 2023Q4

REPORT INFORMATION
  Report Type: Other
  Country: US (occurrence: None)
  Receive Date: 20231031
  Receipt Date: 20231106
  Transmission Date: 20240110
  Serious: Yes (Hospitalization, Other)
  Sender: FDA-Public Use
  Company Number: US-ROCHE-3447852

PATIENT
  Age: 67 Year
  Sex: Male
  Weight: 88.984 kg

DRUGS (22)
  1. ROZLYTREK [Suspect]
     Active Substance: ENTRECTINIB
     Indication: Lung neoplasm malignant
     Dosage: DATE OF TREATMENT 27/OCT/2022, 3 CAPSULES IN THE MORNING ;ONGOING: NO
     Route: 048
     Dates: start: 202211, end: 202307
  2. XALKORI [Concomitant]
     Active Substance: CRIZOTINIB
  3. CARVEDILOL [Concomitant]
     Active Substance: CARVEDILOL
  4. VALSARTAN [Concomitant]
     Active Substance: VALSARTAN
  5. ELIQUIS [Concomitant]
     Active Substance: APIXABAN
  6. ATORVASTATIN [Concomitant]
     Active Substance: ATORVASTATIN
  7. CARISOPRODOL [Concomitant]
     Active Substance: CARISOPRODOL
  8. BETAMETHASONE\CLOTRIMAZOLE [Concomitant]
     Active Substance: BETAMETHASONE\CLOTRIMAZOLE
  9. DEXAMETHASONE [Concomitant]
     Active Substance: DEXAMETHASONE
  10. DOXYCYCLINE [Concomitant]
     Active Substance: DOXYCYCLINE
  11. FOLIC ACID [Concomitant]
     Active Substance: FOLIC ACID
  12. HYDROCHLOROTHIAZIDE [Concomitant]
     Active Substance: HYDROCHLOROTHIAZIDE
  13. ACETAMINOPHEN\HYDROCODONE [Concomitant]
     Active Substance: ACETAMINOPHEN\HYDROCODONE
  14. LIDOCAINE\PRILOCAINE [Concomitant]
     Active Substance: LIDOCAINE\PRILOCAINE
  15. LOPERAMIDE [Concomitant]
     Active Substance: LOPERAMIDE
  16. MELOXICAM [Concomitant]
     Active Substance: MELOXICAM
  17. OMEPRAZOLE [Concomitant]
     Active Substance: OMEPRAZOLE
  18. ONDANSETRON [Concomitant]
     Active Substance: ONDANSETRON
  19. PROAIR HFA [Concomitant]
     Active Substance: ALBUTEROL SULFATE
  20. PROCHLORPERAZINE [Concomitant]
     Active Substance: PROCHLORPERAZINE
  21. TELMISARTAN [Concomitant]
     Active Substance: TELMISARTAN
  22. UMECLIDINIUM [Concomitant]
     Active Substance: UMECLIDINIUM

REACTIONS (7)
  - Dyspnoea [Recovering/Resolving]
  - Cardiac dysfunction [Recovering/Resolving]
  - Oedema [Recovered/Resolved]
  - Hypotension [Recovered/Resolved]
  - Weight decreased [Recovered/Resolved]
  - Thrombosis [Recovered/Resolved]
  - Cerebrovascular accident [Recovered/Resolved]

NARRATIVE: CASE EVENT DATE: 20221101
